FAERS Safety Report 5499830-7 (Version None)
Quarter: 2007Q4

REPORT INFORMATION
  Report Type: 
  Country: None (occurrence: None)
  Receive Date: 20071026
  Receipt Date: 20071015
  Transmission Date: 20080405
  Serious: Yes (Other)
  Sender: FDA-Public Use
  Company Number: FR-PFIZER INC-2007086739

PATIENT
  Age: 41 Year
  Sex: Female

DRUGS (3)
  1. MEDROL [Suspect]
     Indication: PREMEDICATION
     Dosage: TEXT:EVERY DAY TDD:2 DF
  2. ALL OTHER THERAPEUTIC PRODUCTS [Concomitant]
  3. HYDROXYZINE [Concomitant]

REACTIONS (5)
  - ERYTHEMA [None]
  - HEADACHE [None]
  - HYPERSENSITIVITY [None]
  - PALPITATIONS [None]
  - SWELLING [None]
